FAERS Safety Report 4523139-9 (Version None)
Quarter: 2004Q4

REPORT INFORMATION
  Report Type: 
  Country: None (occurrence: None)
  Receive Date: 20041208
  Receipt Date: 20041124
  Transmission Date: 20050328
  Serious: Yes (Hospitalization)
  Sender: FDA-Public Use
  Company Number: 8008187

PATIENT
  Age: 43 Year
  Sex: Female
  Weight: 65 kg

DRUGS (7)
  1. KEPPRA [Suspect]
     Indication: EPILEPSY
     Dosage: 500 MG 2/D PO
     Route: 048
     Dates: start: 20041001, end: 20041108
  2. LAMOTRIGINE [Concomitant]
  3. SANDO K [Concomitant]
  4. SODIUM BICARBONATE [Concomitant]
  5. CODEINE PHOSPHATE [Concomitant]
  6. OMEPRAZOLE [Concomitant]
  7. PHENYTOIN [Concomitant]

REACTIONS (3)
  - ASTHENIA [None]
  - FATIGUE [None]
  - HYPOKALAEMIA [None]
